FAERS Safety Report 5024513-7 (Version None)
Quarter: 2006Q2

REPORT INFORMATION
  Report Type: 
  Country: None (occurrence: None)
  Receive Date: 20060607
  Receipt Date: 20060516
  Transmission Date: 20061013
  Serious: Yes (Hospitalization, Other)
  Sender: FDA-Public Use
  Company Number: 2006069080

PATIENT
  Age: 73 Year
  Sex: Male

DRUGS (12)
  1. MIGLITOL TABLET (MIGLITOL) [Suspect]
     Indication: DIABETES MELLITUS
     Dosage: 150 MG (1 IN 1 D), ORAL
     Route: 048
     Dates: start: 20060309, end: 20060323
  2. EUGLUCON (GLIBENCLAMIDE) [Concomitant]
  3. NORVASC [Concomitant]
  4. BAYCARON (MEFRUSIDE) [Concomitant]
  5. LANIRAPID (METILDIGOXIN) [Concomitant]
  6. BLOPRESS (CANDESARTAN CILEXETIL) [Concomitant]
  7. URSO 250 [Concomitant]
  8. GLYCYRON (AMINOACETIC ACID, DL-METHIONINE, GLYCYRRHIZIC ACID) [Concomitant]
  9. MEXILETINE HYDROCHLORIDE (MEXILETINE HYDROCHLORIDE) [Concomitant]
  10. SHOUSAIKOTOU (HERBAL EXTRACTS NOS) [Concomitant]
  11. LIPITOR [Concomitant]
  12. METFORMIN HCL [Concomitant]

REACTIONS (5)
  - BLOOD GLUCOSE INCREASED [None]
  - BLOOD PRESSURE SYSTOLIC DECREASED [None]
  - BLOOD PRESSURE SYSTOLIC INCREASED [None]
  - HAEMATURIA [None]
  - HAEMORRHAGE URINARY TRACT [None]
